FAERS Safety Report 13594721 (Version 1)
Quarter: 2017Q2

REPORT INFORMATION
  Report Type: Spontaneous
  Country: US (occurrence: US)
  Receive Date: 20170530
  Receipt Date: 20170530
  Transmission Date: 20170830
  Serious: Yes (Hospitalization, Other)
  Sender: FDA-Public Use
  Company Number: US-BRISTOL-MYERS SQUIBB COMPANY-BMS-2017-045842

PATIENT
  Sex: Female

DRUGS (1)
  1. KENALOG [Suspect]
     Active Substance: TRIAMCINOLONE ACETONIDE
     Indication: HEADACHE
     Dosage: 40 MG, UNK
     Route: 030

REACTIONS (8)
  - Gastritis [Unknown]
  - Vomiting [Unknown]
  - Prescribed overdose [Unknown]
  - Abdominal distension [Unknown]
  - Nausea [Unknown]
  - White blood cell count increased [Unknown]
  - Anxiety [Unknown]
  - Feeding disorder [Unknown]
